FAERS Safety Report 24545898 (Version 2)
Quarter: 2024Q4

REPORT INFORMATION
  Report Type: Spontaneous
  Country: US (occurrence: US)
  Receive Date: 20241024
  Receipt Date: 20241211
  Transmission Date: 20250114
  Serious: No
  Sender: NOVARTIS
  Company Number: US-002147023-NVSC2024US207447

PATIENT
  Sex: Female

DRUGS (2)
  1. LEQVIO [Suspect]
     Active Substance: INCLISIRAN SODIUM
     Indication: Hyperlipidaemia
     Dosage: 284 MG, OTHER (INITIATE DOSE, THEN ADDITIONAL AT 3 MOS, THEN MAINTENANCE IS EVERY 6 MOS)
     Route: 058
     Dates: start: 20241014
  2. LEQVIO [Suspect]
     Active Substance: INCLISIRAN SODIUM
     Indication: Low density lipoprotein
     Dosage: 284 MG, OTHER (INITIAL DOSE, THEN FOLLOW UP DOSE AT 3 MOS, AND MAINTENANCE EVERY 6 MOS THEREAFTER)
     Route: 058

REACTIONS (1)
  - Blood glucose increased [Not Recovered/Not Resolved]
